FAERS Safety Report 8060116-8 (Version None)
Quarter: 2012Q1

REPORT INFORMATION
  Report Type: 
  Country: None (occurrence: None)
  Receive Date: 20120120
  Receipt Date: 20120111
  Transmission Date: 20120608
  Serious: Yes (Life-Threatening)
  Sender: FDA-Public Use
  Company Number: US-BAYER-2012-003813

PATIENT
  Sex: Female

DRUGS (1)
  1. AVELOX [Suspect]
     Dosage: 400 MG, UNK
     Route: 048
     Dates: start: 20111221, end: 20111221

REACTIONS (3)
  - CYANOSIS [None]
  - SWELLING FACE [None]
  - PHARYNGEAL OEDEMA [None]
